FAERS Safety Report 8011029-9 (Version None)
Quarter: 2011Q4

REPORT INFORMATION
  Report Type: 
  Country: None (occurrence: None)
  Receive Date: 20111228
  Receipt Date: 20111219
  Transmission Date: 20120403
  Serious: Yes (Other)
  Sender: FDA-Public Use
  Company Number: US-ROCHE-798827

PATIENT
  Sex: Male
  Weight: 95.34 kg

DRUGS (1)
  1. ACCUTANE [Suspect]
     Indication: ACNE CYSTIC
     Route: 048
     Dates: start: 19980401, end: 19980901

REACTIONS (9)
  - ANXIETY [None]
  - INFLAMMATORY BOWEL DISEASE [None]
  - ANAL FISSURE [None]
  - BLOOD CHOLESTEROL INCREASED [None]
  - BLOOD TRIGLYCERIDES INCREASED [None]
  - ARTHRITIS [None]
  - EMOTIONAL DISTRESS [None]
  - EPISTAXIS [None]
  - CROHN'S DISEASE [None]
